FAERS Safety Report 19902757 (Version 2)
Quarter: 2021Q4

REPORT INFORMATION
  Report Type: Report from Study
  Country: US (occurrence: US)
  Receive Date: 20211001
  Receipt Date: 20211231
  Transmission Date: 20220303
  Serious: Yes (Other)
  Sender: FDA-Public Use
  Company Number: US-NOVARTISTESTPH-NVSC2021US219276

PATIENT
  Age: 54 Year
  Sex: Female

DRUGS (1)
  1. MAYZENT [Suspect]
     Active Substance: SIPONIMOD
     Indication: Multiple sclerosis
     Dosage: 2 MG/KG, QD
     Route: 048
     Dates: start: 201905

REACTIONS (5)
  - Petit mal epilepsy [Recovered/Resolved]
  - Feeling abnormal [Recovered/Resolved]
  - Somnolence [Recovered/Resolved]
  - Back pain [Recovered/Resolved]
  - Scoliosis [Recovered/Resolved]

NARRATIVE: CASE EVENT DATE: 20210923
